FAERS Safety Report 8195451-6 (Version None)
Quarter: 2012Q1

REPORT INFORMATION
  Report Type: 
  Country: None (occurrence: None)
  Receive Date: 20120308
  Receipt Date: 20120223
  Transmission Date: 20120608
  Serious: Yes (Hospitalization)
  Sender: FDA-Public Use
  Company Number: PHHO2012IN003219

PATIENT
  Sex: Male
  Weight: 63 kg

DRUGS (10)
  1. CERTICAN [Suspect]
     Indication: RENAL TRANSPLANT
     Dosage: 0.75 MG, BID
     Route: 048
     Dates: start: 20110419, end: 20120222
  2. RANTAC [Concomitant]
     Indication: ANTACID THERAPY
     Dosage: 150 MG, QD
     Route: 048
     Dates: start: 20110207
  3. PRAZOSIN ^RATIOPHARM^ [Concomitant]
     Indication: HYPERTENSION
     Dosage: 5 MG, BID
     Route: 048
     Dates: start: 20110207
  4. MYFORTIC [Concomitant]
     Indication: RENAL TRANSPLANT
     Dosage: 360 MG, BID
     Route: 048
     Dates: start: 20110207
  5. SEPTRAN [Concomitant]
     Indication: PROPHYLAXIS
     Dosage: 480 MG, ALTERNATE DAYS
     Route: 048
     Dates: start: 20110207
  6. PREDNISOLONE [Concomitant]
     Indication: PROPHYLAXIS
     Dosage: UNK
     Route: 048
     Dates: start: 20110207, end: 20120222
  7. PREDNISOLONE [Concomitant]
     Dosage: 2.5 MG, QD
     Route: 048
  8. METOPROLOL TARTRATE [Concomitant]
     Indication: HYPERTENSION
     Dosage: 25 MG, BID
     Route: 048
     Dates: start: 20120222
  9. PREDNISOLONE [Concomitant]
     Dosage: 40 MG, QD
     Route: 048
  10. ARKAMIN [Concomitant]
     Indication: HYPERTENSION
     Dosage: 0.1 UG, 1-1-2
     Dates: start: 20110207

REACTIONS (1)
  - MYOPATHY [None]
